FAERS Safety Report 9098081 (Version 1)
Quarter: 2013Q1

REPORT INFORMATION
  Report Type: Report from Study
  Country: FR (occurrence: FR)
  Receive Date: 20130212
  Receipt Date: 20130212
  Transmission Date: 20140127
  Serious: Yes (Hospitalization)
  Sender: FDA-Public Use
  Company Number: FR-ROCHE-1189384

PATIENT
  Age: 68 Year
  Sex: Male

DRUGS (24)
  1. TOCILIZUMAB [Suspect]
     Indication: RHEUMATOID ARTHRITIS
     Dosage: LAST DOSE PRIOR TO SAE: 28/DEC/2011
     Route: 041
     Dates: start: 20110517
  2. TOCILIZUMAB [Suspect]
     Route: 041
     Dates: start: 20110615
  3. TOCILIZUMAB [Suspect]
     Route: 041
     Dates: start: 20110713
  4. TOCILIZUMAB [Suspect]
     Route: 041
     Dates: start: 20110810
  5. TOCILIZUMAB [Suspect]
     Route: 041
     Dates: start: 20110922
  6. TOCILIZUMAB [Suspect]
     Dosage: 480 MG
     Route: 041
     Dates: start: 20111021
  7. TOCILIZUMAB [Suspect]
     Route: 041
     Dates: start: 20111121
  8. TOCILIZUMAB [Suspect]
     Route: 041
     Dates: start: 20111228
  9. TOCILIZUMAB [Suspect]
     Route: 041
     Dates: start: 20120127
  10. TOCILIZUMAB [Suspect]
     Route: 041
     Dates: start: 20120224
  11. TOCILIZUMAB [Suspect]
     Route: 041
     Dates: start: 20120425
  12. TOCILIZUMAB [Suspect]
     Route: 041
     Dates: start: 20120522
  13. PLAQUENIL [Concomitant]
     Indication: RHEUMATOID ARTHRITIS
  14. METHOTREXATE [Concomitant]
     Indication: RHEUMATOID ARTHRITIS
     Route: 065
     Dates: start: 20120522
  15. CORTANCYL [Concomitant]
     Indication: RHEUMATOID ARTHRITIS
     Route: 065
     Dates: start: 20110810
  16. CORTANCYL [Concomitant]
     Route: 065
     Dates: start: 20111121
  17. CORTANCYL [Concomitant]
     Route: 065
     Dates: start: 20120522
  18. SKENAN [Concomitant]
     Route: 065
  19. SKENAN [Concomitant]
     Route: 065
     Dates: start: 20120522
  20. PROZAC [Concomitant]
  21. HYDROCORTISONE [Concomitant]
     Route: 065
  22. HYDROCORTISONE [Concomitant]
     Route: 065
  23. FORLAX (FRANCE) [Concomitant]
  24. MOPRAL (FRANCE) [Concomitant]
     Route: 065

REACTIONS (6)
  - Stress fracture [Recovered/Resolved]
  - Sinusitis [Recovered/Resolved]
  - Eye infection [Recovered/Resolved]
  - Tooth extraction [Recovered/Resolved]
  - Thrombocytopenia [Recovered/Resolved]
  - Rhinorrhoea [Recovered/Resolved]
